FAERS Safety Report 8664675 (Version 4)
Quarter: 2012Q4

REPORT INFORMATION
  Report Type: Report from Study
  Country: US (occurrence: US)
  Receive Date: 20120713
  Receipt Date: 20121113
  Transmission Date: 20130627
  Serious: Yes (Hospitalization)
  Sender: FDA-Public Use
  Company Number: US-PURDUE-USA-2012-0089844

PATIENT
  Age: 45 Year
  Sex: Female

DRUGS (8)
  1. OXYCONTIN (NDA 22-272) [Suspect]
     Indication: PAIN
     Dosage: 60 mg, q12h
     Route: 048
  2. OXYCONTIN (NDA 22-272) [Suspect]
     Indication: BACK PAIN
  3. OXYCONTIN (NDA 22-272) [Suspect]
     Indication: NECK PAIN
  4. ABILIFY [Concomitant]
     Indication: SCHIZOPHRENIA, PARANOID TYPE
     Dosage: 10 mg, daily
     Route: 048
  5. LISINOPRIL [Concomitant]
     Indication: HYPERTENSION
     Dosage: 20 mg, bid
     Route: 048
  6. METOPROLOL [Concomitant]
     Indication: HYPERTENSION
     Dosage: 50 mg, bid
     Route: 048
  7. LORCET                             /00607101/ [Concomitant]
     Indication: BREAKTHROUGH PAIN
     Dosage: 2 tablet, tid prn
     Route: 048
  8. ASPIRIN [Concomitant]
     Indication: PRODUCT USED FOR UNKNOWN INDICATION
     Dosage: 1 tablet, daily
     Route: 048

REACTIONS (3)
  - Cerebrovascular accident [Recovered/Resolved]
  - Pneumonia [Unknown]
  - Hemiparesis [Not Recovered/Not Resolved]
